FAERS Safety Report 7604165-X (Version None)
Quarter: 2011Q3

REPORT INFORMATION
  Report Type: 
  Country: None (occurrence: None)
  Receive Date: 20110711
  Receipt Date: 20110711
  Transmission Date: 20111222
  Serious: Yes (Other)
  Sender: FDA-Public Use
  Company Number: None

PATIENT
  Age: 60 Year
  Sex: Female
  Weight: 60.782 kg

DRUGS (5)
  1. PRISTIQ [Suspect]
     Indication: DEPRESSION
     Dosage: LOWEST ONCE A DAY PO
     Route: 048
     Dates: start: 19850101, end: 19860101
  2. PRISTIQ [Suspect]
     Indication: PAIN
     Dosage: LOWEST ONCE A DAY PO
     Route: 048
     Dates: start: 19850101, end: 19860101
  3. PRISTIQ [Suspect]
     Indication: DEPRESSION
     Dosage: LOWEST ONCE A DAY PO
     Route: 048
     Dates: start: 20110412, end: 20110616
  4. PRISTIQ [Suspect]
     Indication: PAIN
     Dosage: LOWEST ONCE A DAY PO
     Route: 048
     Dates: start: 20110412, end: 20110616
  5. PRISTIQ [Concomitant]

REACTIONS (14)
  - ANXIETY [None]
  - MUSCLE SPASMS [None]
  - INSOMNIA [None]
  - ASTHENIA [None]
  - FEELING ABNORMAL [None]
  - CHILLS [None]
  - ELECTROCARDIOGRAM ABNORMAL [None]
  - CRYING [None]
  - PAIN [None]
  - HYPERHIDROSIS [None]
  - GASTROINTESTINAL PAIN [None]
  - TREMOR [None]
  - WITHDRAWAL SYNDROME [None]
  - DYSPNOEA [None]
